FAERS Safety Report 24184793 (Version 1)
Quarter: 2024Q3

REPORT INFORMATION
  Report Type: Report from Study
  Country: GR (occurrence: GR)
  Receive Date: 20240807
  Receipt Date: 20240807
  Transmission Date: 20241017
  Serious: Yes (Life-Threatening)
  Sender: BAYER
  Company Number: GR-BAYER-2024A110101

PATIENT
  Age: 81 Year
  Sex: Male

DRUGS (13)
  1. FINERENONE [Suspect]
     Active Substance: FINERENONE
     Indication: Chronic kidney disease
     Dosage: 10 MG, QD
     Dates: start: 20240523
  2. FINERENONE [Suspect]
     Active Substance: FINERENONE
     Indication: Type 2 diabetes mellitus
  3. Rosuben plus [Concomitant]
     Dosage: 5 MG
     Dates: start: 20231019
  4. LINAGLIPTIN [Concomitant]
     Active Substance: LINAGLIPTIN
     Indication: Type 2 diabetes mellitus
     Dosage: 5 MG
     Dates: start: 20211208
  5. EVANGIO [Concomitant]
     Dosage: 10 MG
     Dates: start: 20191126
  6. FEBUXOSTAT [Concomitant]
     Active Substance: FEBUXOSTAT
     Indication: Chronic kidney disease
     Dosage: 80 MG
     Dates: start: 20231019
  7. ATENOLOL [Concomitant]
     Active Substance: ATENOLOL
     Dosage: 50 MG
     Dates: start: 20161123
  8. FERROBIVAL [Concomitant]
     Indication: Chronic kidney disease
     Dosage: 80 MG
     Dates: start: 20231019
  9. DAPAGLIFLOZIN [Concomitant]
     Active Substance: DAPAGLIFLOZIN
     Indication: Type 2 diabetes mellitus
     Dosage: 10 MG
     Dates: start: 20231019
  10. REXTOL [Concomitant]
     Indication: Chronic kidney disease
     Dosage: UNK
     Dates: start: 20231129, end: 20240710
  11. CINACALCET [Concomitant]
     Active Substance: CINACALCET
     Indication: Chronic kidney disease
     Dosage: 30 MG
     Dates: start: 20240710
  12. LOKELMA [Concomitant]
     Active Substance: SODIUM ZIRCONIUM CYCLOSILICATE
     Indication: Chronic kidney disease
     Dosage: 5 G
     Dates: start: 20231019, end: 20240711
  13. LOKELMA [Concomitant]
     Active Substance: SODIUM ZIRCONIUM CYCLOSILICATE
     Indication: Chronic kidney disease
     Dosage: 10 G
     Dates: start: 20240712

REACTIONS (1)
  - Hyperkalaemia [Recovering/Resolving]

NARRATIVE: CASE EVENT DATE: 20240712
